FAERS Safety Report 5055952-6 (Version None)
Quarter: 2006Q3

REPORT INFORMATION
  Report Type: 
  Country: None (occurrence: None)
  Receive Date: 20060720
  Receipt Date: 20060701
  Transmission Date: 20061208
  Serious: No
  Sender: FDA-Public Use
  Company Number: PHEH2006US08554

PATIENT

DRUGS (1)
  1. VIVELLE-DOT [Suspect]
     Dosage: 0.0375 MG/DAY, BIW
     Route: 062

REACTIONS (2)
  - COMPUTERISED TOMOGRAM ABNORMAL [None]
  - SCAR [None]
